FAERS Safety Report 8033247 (Version 2)
Quarter: 2013Q1

REPORT INFORMATION
  Report Type: Spontaneous
  Country: US (occurrence: US)
  Receive Date: 20110713
  Receipt Date: 20130108
  Transmission Date: 20140127
  Serious: Yes (Death, Hospitalization)
  Sender: FDA-Public Use
  Company Number: US-GLAXOSMITHKLINE-A0909726A

PATIENT
  Age: 75 Year
  Sex: Male

DRUGS (1)
  1. AVANDIA [Suspect]
     Indication: TYPE 2 DIABETES MELLITUS
     Route: 048
     Dates: end: 20100526

REACTIONS (4)
  - Myocardial infarction [Fatal]
  - Swelling face [Unknown]
  - Swelling [Unknown]
  - General physical health deterioration [Unknown]
